FAERS Safety Report 7096868 (Version 32)
Quarter: 2018Q2

REPORT INFORMATION
  Report Type: Report from Study
  Country: CA (occurrence: CA)
  Receive Date: 20090826
  Receipt Date: 20180501
  Transmission Date: 20180711
  Serious: Yes (Hospitalization, Other)
  Sender: FDA-Public Use
  Company Number: PHHY2009CA35179

PATIENT
  Age: 66 Year
  Sex: Male

DRUGS (14)
  1. SANDOSTATIN LAR DEPOT [Suspect]
     Active Substance: OCTREOTIDE ACETATE
     Dosage: 30 MG, QMO (EVERY 4 WEEKS)
     Route: 030
     Dates: start: 20100511, end: 20150408
  2. SANDOSTATIN [Suspect]
     Active Substance: OCTREOTIDE ACETATE
     Indication: MALIGNANT NEOPLASM OF ISLETS OF LANGERHANS
     Route: 058
     Dates: start: 20081015, end: 20081221
  3. SUTENT [Suspect]
     Active Substance: SUNITINIB MALATE
     Indication: PRODUCT USED FOR UNKNOWN INDICATION
     Dosage: 12.5 MG,
     Route: 065
  4. RAMIPRIL. [Suspect]
     Active Substance: RAMIPRIL
     Indication: HYPERTENSION
     Dosage: 5 MG, QD
     Route: 065
  5. SANDOSTATIN LAR DEPOT [Suspect]
     Active Substance: OCTREOTIDE ACETATE
     Dosage: 30 MG, QMO
     Route: 030
     Dates: start: 20161214
  6. RAMIPRIL. [Suspect]
     Active Substance: RAMIPRIL
     Dosage: 10 MG, QD
     Route: 065
  7. LIPITOR [Concomitant]
     Active Substance: ATORVASTATIN CALCIUM
     Indication: PRODUCT USED FOR UNKNOWN INDICATION
     Dosage: 20 MG, QD
     Route: 065
  8. SANDOSTATIN LAR DEPOT [Suspect]
     Active Substance: OCTREOTIDE ACETATE
     Indication: MALIGNANT NEOPLASM OF ISLETS OF LANGERHANS
     Dosage: 20 MG, QMO (EVERY 4 WEEKS)
     Route: 030
     Dates: start: 20090817, end: 20100410
  9. AFINITOR [Suspect]
     Active Substance: EVEROLIMUS
     Indication: MALIGNANT NEOPLASM OF ISLETS OF LANGERHANS
     Dosage: 10 MG, QD
     Route: 048
     Dates: start: 20110513
  10. RAMIPRIL. [Suspect]
     Active Substance: RAMIPRIL
     Dosage: 5 MG, QD
     Route: 065
  11. NORVASC [Concomitant]
     Active Substance: AMLODIPINE BESYLATE
     Indication: PRODUCT USED FOR UNKNOWN INDICATION
     Dosage: 2.5 MG, QD
     Route: 065
  12. SUTENT [Suspect]
     Active Substance: SUNITINIB MALATE
     Dosage: 25 MG, UNK
     Route: 065
  13. SANDOSTATIN LAR DEPOT [Suspect]
     Active Substance: OCTREOTIDE ACETATE
     Dosage: 60 MG, EVERY 28 DAYS
     Route: 030
     Dates: start: 20150506
  14. INDAPAMIDE. [Concomitant]
     Active Substance: INDAPAMIDE
     Indication: PRODUCT USED FOR UNKNOWN INDICATION
     Dosage: 1.25 MG, QD
     Route: 065

REACTIONS (36)
  - Prostate cancer stage I [Unknown]
  - Dizziness [Recovered/Resolved]
  - Renal mass [Unknown]
  - Needle issue [Unknown]
  - Hypertension [Recovering/Resolving]
  - Malignant neoplasm progression [Unknown]
  - Blood pressure decreased [Recovered/Resolved]
  - Blood glucose decreased [Unknown]
  - Pulmonary embolism [Unknown]
  - Second primary malignancy [Unknown]
  - Yellow skin [Unknown]
  - Vertigo [Unknown]
  - Injection site pain [Unknown]
  - Underdose [Unknown]
  - Syringe issue [Unknown]
  - Feeling abnormal [Recovered/Resolved]
  - Tremor [Recovered/Resolved]
  - Sleep disorder [Unknown]
  - White blood cell count decreased [Unknown]
  - Blood glucose increased [Recovering/Resolving]
  - Syncope [Recovered/Resolved]
  - Abdominal distension [Recovering/Resolving]
  - Blood pressure increased [Unknown]
  - Pulse abnormal [Recovering/Resolving]
  - Abdominal pain [Recovering/Resolving]
  - Skin disorder [Unknown]
  - Psychomotor hyperactivity [Recovered/Resolved]
  - Flushing [Unknown]
  - Vision blurred [Recovering/Resolving]
  - Hyperhidrosis [Recovered/Resolved]
  - Chills [Not Recovered/Not Resolved]
  - Pollakiuria [Unknown]
  - Rectal haemorrhage [Unknown]
  - Anxiety [Recovered/Resolved]
  - Musculoskeletal pain [Recovering/Resolving]
  - Blood bilirubin increased [Unknown]

NARRATIVE: CASE EVENT DATE: 20131210
